FAERS Safety Report 5261212-0 (Version None)
Quarter: 2007Q1

REPORT INFORMATION
  Report Type: 
  Country: None (occurrence: None)
  Receive Date: 20070309
  Receipt Date: 20070227
  Transmission Date: 20070707
  Serious: Yes (Hospitalization)
  Sender: FDA-Public Use
  Company Number: BR-PFIZER INC-2007015758

PATIENT
  Sex: Male

DRUGS (1)
  1. SUTENT [Suspect]
     Indication: NEOPLASM MALIGNANT
     Route: 048

REACTIONS (12)
  - ANAEMIA [None]
  - CARDIAC FAILURE [None]
  - DECREASED APPETITE [None]
  - DIABETES MELLITUS [None]
  - DYSPNOEA [None]
  - INSOMNIA [None]
  - INTESTINAL HAEMORRHAGE [None]
  - NAUSEA [None]
  - PALLOR [None]
  - PLATELET COUNT DECREASED [None]
  - PROSTRATION [None]
  - RENAL FAILURE [None]
